FAERS Safety Report 12459656 (Version 2)
Quarter: 2016Q3

REPORT INFORMATION
  Report Type: Spontaneous
  Country: JP (occurrence: JP)
  Receive Date: 20160613
  Receipt Date: 20160727
  Transmission Date: 20161109
  Serious: Yes (Death, Hospitalization)
  Sender: FDA-Public Use
  Company Number: JP-PFIZER INC-2016282301

PATIENT
  Age: 68 Year
  Sex: Male
  Weight: 63 kg

DRUGS (9)
  1. ZYVOX [Suspect]
     Active Substance: LINEZOLID
     Indication: STAPHYLOCOCCAL INFECTION
     Dosage: 1200 MG, DAILY
     Route: 041
     Dates: start: 20160102, end: 20160111
  2. ONOACT [Concomitant]
     Active Substance: LANDIOLOL HYDROCHLORIDE
     Indication: SUPRAVENTRICULAR TACHYCARDIA
     Dosage: 72 MG, DAILY
     Route: 041
     Dates: start: 20150220, end: 20160126
  3. ONOACT [Concomitant]
     Active Substance: LANDIOLOL HYDROCHLORIDE
     Indication: ATRIAL FIBRILLATION
  4. HEPARIN [Suspect]
     Active Substance: HEPARIN SODIUM
     Indication: CENTRAL VENOUS CATHETERISATION
     Dosage: UNK
     Dates: start: 20160106, end: 20160114
  5. NOVORAPID [Concomitant]
     Active Substance: INSULIN ASPART
     Dosage: UNK
     Route: 041
  6. LANTUS [Concomitant]
     Active Substance: INSULIN GLARGINE
     Dosage: UNK
     Route: 058
  7. SERENACE [Concomitant]
     Active Substance: HALOPERIDOL
     Dosage: UNK
     Route: 041
  8. SOLACET F [Concomitant]
     Dosage: UNK
     Route: 041
  9. OXIFAST [Concomitant]
     Active Substance: OXYCODONE
     Dosage: UNK
     Route: 041

REACTIONS (2)
  - Platelet count decreased [Recovered/Resolved]
  - Bile duct cancer recurrent [Fatal]

NARRATIVE: CASE EVENT DATE: 20160110
